FAERS Safety Report 6058477-4 (Version None)
Quarter: 2009Q1

REPORT INFORMATION
  Report Type: 
  Country: None (occurrence: None)
  Receive Date: 20090130
  Receipt Date: 20090121
  Transmission Date: 20090719
  Serious: Yes (Other)
  Sender: FDA-Public Use
  Company Number: PHHY2009CL02585

PATIENT
  Age: 42 Year
  Sex: Female

DRUGS (3)
  1. GLEEVEC [Suspect]
     Indication: CHRONIC MYELOID LEUKAEMIA
     Dosage: 600 MG PER DAY
  2. FOLIC ACID [Concomitant]
  3. VITAMINS [Concomitant]

REACTIONS (1)
  - B-CELL LYMPHOMA [None]
